FAERS Safety Report 17802390 (Version 2)
Quarter: 2020Q2

REPORT INFORMATION
  Report Type: Spontaneous
  Country: JP (occurrence: JP)
  Receive Date: 20200519
  Receipt Date: 20200519
  Transmission Date: 20200714
  Serious: Yes (Other)
  Sender: FDA-Public Use
  Company Number: NVSJ2020JP005036

PATIENT
  Age: 44 Year
  Sex: Male

DRUGS (1)
  1. CYCLOSPORINE. [Suspect]
     Active Substance: CYCLOSPORINE
     Indication: PANCYTOPENIA
     Dosage: 210 MG
     Route: 065

REACTIONS (3)
  - Renal impairment [Recovered/Resolved]
  - Fluid retention [Recovered/Resolved]
  - Product use in unapproved indication [Unknown]
